FAERS Safety Report 8959232 (Version 1)
Quarter: 2012Q4

REPORT INFORMATION
  Report Type: 
  Country: US (occurrence: US)
  Receive Date: 20121212
  Receipt Date: 20121212
  Transmission Date: 20130627
  Serious: Yes (Other)
  Sender: FDA-Public Use
  Company Number: US-ELI_LILLY_AND_COMPANY-US201203008048

PATIENT
  Age: 72 Year
  Sex: Female

DRUGS (6)
  1. FORTEO [Suspect]
     Indication: OSTEOPOROSIS
     Dosage: UNK, qd
     Route: 065
  2. FORTEO [Suspect]
     Dosage: 20 ug, qd
  3. VITAMIN D [Concomitant]
     Dosage: UNK UNK, qd
  4. CALCIUM [Concomitant]
     Dosage: UNK, bid
  5. LOPRESSOR [Concomitant]
     Dosage: 10 mg, qd
  6. B12-VITAMIN [Concomitant]
     Indication: ANAEMIA
     Dosage: UNK, monthly (1/M)

REACTIONS (13)
  - Tibia fracture [Recovering/Resolving]
  - Fibula fracture [Recovering/Resolving]
  - Ankle fracture [Recovering/Resolving]
  - Fall [Unknown]
  - Balance disorder [Unknown]
  - Nervousness [Unknown]
  - Dizziness [Unknown]
  - Drug dose omission [Unknown]
  - Peroneal muscular atrophy [Unknown]
  - Confusional state [Unknown]
  - Immobile [Unknown]
  - Fatigue [Unknown]
  - Drug ineffective [Unknown]
